FAERS Safety Report 6718554-9 (Version None)
Quarter: 2010Q2

REPORT INFORMATION
  Report Type: 
  Country: None (occurrence: None)
  Receive Date: 20100503
  Receipt Date: 20100420
  Transmission Date: 20101027
  Serious: Yes (Hospitalization)
  Sender: FDA-Public Use
  Company Number: 7001931

PATIENT
  Age: 39 Year
  Sex: Female

DRUGS (3)
  1. REBIF [Suspect]
     Indication: MULTIPLE SCLEROSIS
     Dosage: 44 MCG, 3 IN 1 WK, SUBCUTANEOUS, ORAL
     Route: 058
     Dates: start: 20080325
  2. STEROIDS (CORTICOSTEROIDS) [Suspect]
     Indication: MULTIPLE SCLEROSIS RELAPSE
     Dosage: INTRAVENOUS, ORAL
     Route: 048
     Dates: start: 20100401
  3. STEROIDS (CORTICOSTEROIDS) [Suspect]
     Indication: OPTIC NEURITIS
     Dosage: INTRAVENOUS, ORAL
     Route: 048
     Dates: start: 20100401

REACTIONS (6)
  - EXOSTOSIS [None]
  - MIGRAINE [None]
  - MULTIPLE SCLEROSIS RELAPSE [None]
  - OPTIC NEURITIS [None]
  - PAIN IN EXTREMITY [None]
  - TYPE 1 DIABETES MELLITUS [None]
